FAERS Safety Report 7052404-9 (Version None)
Quarter: 2010Q4

REPORT INFORMATION
  Report Type: 
  Country: None (occurrence: None)
  Receive Date: 20101014
  Receipt Date: 20101005
  Transmission Date: 20110411
  Serious: Yes (Hospitalization, Other)
  Sender: FDA-Public Use
  Company Number: 2010US003400

PATIENT
  Sex: Female
  Weight: 68 kg

DRUGS (8)
  1. PROGRAF [Suspect]
     Indication: RENAL AND PANCREAS TRANSPLANT
     Dosage: 10 MG, UID/QD, ORAL; 13 DF, UID/QD, ORAL; 6 MG, BID, ORAL; 5 MG, BID, ORAL
     Route: 048
     Dates: start: 19950214
  2. INSULIN LANTUS (INSULIN GLARGINE) [Concomitant]
  3. NOVOLOG [Concomitant]
  4. SODIUM BICARBONATE IN PLASTIC CONTAINER [Concomitant]
  5. ASPIRIN [Concomitant]
  6. PRILOSEC (OMEPRAZOLE MAGNESIUM) [Concomitant]
  7. PEPCID (MAGNESIUM TRISILICATE, SODIUM BICARBONATE) [Concomitant]
  8. MULTIVITAMIN (VITAMINS NOS) TABLET [Concomitant]

REACTIONS (7)
  - ANXIETY [None]
  - AUTOIMMUNE DISORDER [None]
  - BRAIN STEM INFARCTION [None]
  - CAROTID ARTERY DISSECTION [None]
  - CEREBROVASCULAR ACCIDENT [None]
  - DEPRESSION [None]
  - UTERINE LEIOMYOMA [None]
